FAERS Safety Report 7546950-9 (Version None)
Quarter: 2011Q2

REPORT INFORMATION
  Report Type: 
  Country: None (occurrence: None)
  Receive Date: 20110614
  Receipt Date: 20110609
  Transmission Date: 20111010
  Serious: Yes (Hospitalization)
  Sender: FDA-Public Use
  Company Number: US-B.I. PHARMACEUTICALS,INC./RIDGEFIELD-2011-BP-15058BP

PATIENT
  Age: 59 Year
  Sex: Male

DRUGS (13)
  1. ALLOPURINOL [Concomitant]
     Indication: GOUT
  2. COREG [Concomitant]
     Indication: HYPERTENSION
  3. FUROSEMIDE [Concomitant]
  4. GEMFIBROZIL [Concomitant]
     Indication: BLOOD CHOLESTEROL INCREASED
  5. VITAMIN D [Concomitant]
     Indication: SUPPLEMENTATION THERAPY
  6. RAMIPRIL [Concomitant]
     Indication: HYPERTENSION
  7. BUPROPION HCL [Concomitant]
     Indication: DEPRESSION
  8. HYDROCODONE BITARTRATE [Concomitant]
     Indication: BACK PAIN
  9. TIKOSYN [Concomitant]
     Indication: ARRHYTHMIA
  10. AMLODIPINE [Concomitant]
     Indication: HYPERTENSION
  11. LUNESTA [Concomitant]
     Indication: SLEEP DISORDER
  12. PRADAXA [Suspect]
     Indication: ATRIAL FIBRILLATION
     Dosage: 300 MG
     Route: 048
     Dates: start: 20110501, end: 20110608
  13. MELOXICAM (GENERIC) [Concomitant]
     Indication: BACK PAIN

REACTIONS (6)
  - HAEMATOCHEZIA [None]
  - DISTURBANCE IN ATTENTION [None]
  - ASTHENIA [None]
  - MENTAL IMPAIRMENT [None]
  - ABDOMINAL PAIN UPPER [None]
  - APHAGIA [None]
